FAERS Safety Report 25089826 (Version 2)
Quarter: 2025Q2

REPORT INFORMATION
  Report Type: Spontaneous
  Country: JP (occurrence: JP)
  Receive Date: 20250318
  Receipt Date: 20250604
  Transmission Date: 20250716
  Serious: No
  Sender: ASTELLAS
  Company Number: JP-ASTELLAS-2025-AER-014732

PATIENT
  Age: 87 Year
  Sex: Male

DRUGS (1)
  1. XTANDI [Suspect]
     Active Substance: ENZALUTAMIDE
     Indication: Prostate cancer
     Route: 048

REACTIONS (1)
  - Product storage error [Unknown]
